FAERS Safety Report 6260488-0 (Version None)
Quarter: 2009Q3

REPORT INFORMATION
  Report Type: 
  Country: None (occurrence: None)
  Receive Date: 20090708
  Receipt Date: 20090626
  Transmission Date: 20100115
  Serious: Yes (Life-Threatening, Hospitalization, Other)
  Sender: FDA-Public Use
  Company Number: JP-PFIZER INC-2009233772

PATIENT
  Age: 20 Year

DRUGS (2)
  1. ZOLOFT [Suspect]
     Route: 048
  2. BENZODIAZEPINE DERIVATIVES [Concomitant]

REACTIONS (4)
  - OVERDOSE [None]
  - RENAL DISORDER [None]
  - SOMNOLENCE [None]
  - URINARY RETENTION [None]
